FAERS Safety Report 7357888-4 (Version None)
Quarter: 2011Q1

REPORT INFORMATION
  Report Type: 
  Country: None (occurrence: None)
  Receive Date: 20110309
  Receipt Date: 20110221
  Transmission Date: 20110831
  Serious: Yes (Hospitalization, Other)
  Sender: FDA-Public Use
  Company Number: 2011MA001603

PATIENT
  Age: 34 Year
  Sex: Female

DRUGS (2)
  1. FELBINAC [Concomitant]
  2. DICLOFENAC SODIUM [Suspect]
     Indication: MYALGIA
     Dosage: ;QOD;

REACTIONS (3)
  - SKIN PLAQUE [None]
  - DERMATITIS CONTACT [None]
  - RASH PRURITIC [None]
